FAERS Safety Report 26137231 (Version 1)
Quarter: 2025Q4

REPORT INFORMATION
  Report Type: Spontaneous
  Country: EU (occurrence: EU)
  Receive Date: 20251209
  Receipt Date: 20251209
  Transmission Date: 20260118
  Serious: Yes (Hospitalization)
  Sender: PFIZER
  Company Number: None

PATIENT
  Age: 11 Year
  Sex: Female
  Weight: 47 kg

DRUGS (1)
  1. RAPAMUNE [Suspect]
     Active Substance: SIROLIMUS
     Indication: Thrombocytopenia
     Dosage: 1.6 MG/MQ/DIE
     Route: 048
     Dates: start: 20230307, end: 20250319

REACTIONS (2)
  - Pneumonitis [Recovered/Resolved]
  - Off label use [Recovered/Resolved]

NARRATIVE: CASE EVENT DATE: 20230307
